FAERS Safety Report 4827483-7 (Version None)
Quarter: 2005Q4

REPORT INFORMATION
  Report Type: 
  Country: None (occurrence: None)
  Receive Date: 20051114
  Receipt Date: 20050812
  Transmission Date: 20060501
  Serious: Yes (Death)
  Sender: FDA-Public Use
  Company Number: PHFR2005GB02749

PATIENT
  Age: 76 Year
  Sex: Male
  Weight: 163 kg

DRUGS (10)
  1. SANDOSTATIN ACETATE LAR [Suspect]
     Indication: NEUROENDOCRINE TUMOUR
     Dosage: 20MG/DAY
     Route: 030
     Dates: start: 20050221, end: 20050731
  2. ISOSORBIDE MONONITRATE [Concomitant]
     Indication: CARDIAC FAILURE CONGESTIVE
     Dosage: 25MG/DAY
     Route: 048
  3. RISPERIDONE [Concomitant]
     Dosage: 1.25 MG, QD
     Route: 065
  4. FRUSEMIDE [Concomitant]
     Indication: ANGINA PECTORIS
     Dosage: 80 MG, BID
     Route: 065
  5. LISINOPRIL [Concomitant]
     Dosage: 5 MG, QD
     Route: 065
  6. DIGOXIN [Concomitant]
     Dosage: 125 MG, QD
     Route: 065
  7. LANSOPRAZOLE [Concomitant]
     Dosage: 30 MG, QD
     Route: 065
  8. ZOPICLONE [Concomitant]
     Dosage: 7.5MG PER DAY
     Route: 065
  9. ASPIRIN [Concomitant]
     Dosage: 75 MG, QD
     Route: 065
  10. DUTASTERIDE [Concomitant]
     Indication: URINARY HESITATION
     Dosage: 500MG
     Route: 065

REACTIONS (2)
  - METASTATIC NEOPLASM [None]
  - NEUROENDOCRINE TUMOUR [None]
